FAERS Safety Report 10940104 (Version 2)
Quarter: 2015Q2

REPORT INFORMATION
  Report Type: Spontaneous
  Country: US (occurrence: US)
  Receive Date: 20150322
  Receipt Date: 20150525
  Transmission Date: 20150821
  Serious: No
  Sender: FDA-Public Use
  Company Number: US-JNJFOC-20150210165

PATIENT
  Age: 61 Year
  Sex: Female
  Weight: 58.06 kg

DRUGS (4)
  1. NUCYNTA [Suspect]
     Active Substance: TAPENTADOL HYDROCHLORIDE
     Indication: ARTHRALGIA
     Route: 048
     Dates: start: 201408
  2. NUCYNTA [Suspect]
     Active Substance: TAPENTADOL HYDROCHLORIDE
     Indication: ARTHRALGIA
     Route: 048
     Dates: start: 201406, end: 201408
  3. PROZAC [Concomitant]
     Active Substance: FLUOXETINE HYDROCHLORIDE
     Indication: DEPRESSION
     Route: 065
  4. ZOLAMIDE [Concomitant]
     Active Substance: ACETAZOLAMIDE
     Indication: ARTHRALGIA
     Route: 065

REACTIONS (6)
  - Drug diversion [Unknown]
  - Inadequate analgesia [Not Recovered/Not Resolved]
  - Back disorder [Unknown]
  - Nausea [Unknown]
  - Vomiting [Unknown]
  - Depression [Unknown]

NARRATIVE: CASE EVENT DATE: 201407
